FAERS Safety Report 9451180 (Version 2)
Quarter: 2013Q3

REPORT INFORMATION
  Report Type: Spontaneous
  Country: JP (occurrence: JP)
  Receive Date: 20130809
  Receipt Date: 20130813
  Transmission Date: 20140515
  Serious: Yes (Hospitalization, Other)
  Sender: FDA-Public Use
  Company Number: JP-MERCK-1306JPN011887

PATIENT
  Age: 67 Year
  Sex: Female

DRUGS (11)
  1. GLACTIV [Suspect]
     Indication: TYPE 2 DIABETES MELLITUS
     Dosage: 50 MG, QD
     Route: 048
     Dates: start: 20100511, end: 20110210
  2. GLACTIV [Suspect]
     Dosage: 50 MG, QD
     Route: 048
     Dates: start: 20110818, end: 20130512
  3. KERLONG [Concomitant]
     Dosage: UNK
     Dates: start: 20100511
  4. BLOPRESS [Concomitant]
     Dosage: UNK
     Dates: start: 20071204
  5. PURSENNID (SENNOSIDES) [Concomitant]
     Dosage: UNK
     Dates: start: 20070517
  6. CONIEL [Concomitant]
     Dosage: UNK
     Dates: start: 20070807
  7. GLUCOBAY [Concomitant]
     Dosage: UNK
     Dates: start: 20070904, end: 20130512
  8. GLUCOBAY [Concomitant]
     Dosage: UNK
     Dates: start: 20130603
  9. METGLUCO [Concomitant]
     Dosage: 750 MG, UNK
     Dates: start: 20070904, end: 20110817
  10. METGLUCO [Concomitant]
     Dosage: 1500 MG, UNK
     Dates: start: 20110818, end: 20130512
  11. METGLUCO [Concomitant]
     Dosage: UNK

REACTIONS (2)
  - Pancreatitis [Recovered/Resolved]
  - Hyperglycaemia [Recovered/Resolved]
